FAERS Safety Report 12047919 (Version 3)
Quarter: 2016Q1

REPORT INFORMATION
  Report Type: Report from Study
  Country: US (occurrence: US)
  Receive Date: 20160209
  Receipt Date: 20160314
  Transmission Date: 20160526
  Serious: No
  Sender: FDA-Public Use
  Company Number: US-AMGEN-USASL2016012997

PATIENT
  Age: 52 Year
  Sex: Female

DRUGS (2)
  1. ENBREL [Suspect]
     Active Substance: ETANERCEPT
     Indication: RHEUMATOID ARTHRITIS
     Dosage: 50 MG, QWK
     Route: 065
     Dates: start: 201309
  2. ENBREL [Suspect]
     Active Substance: ETANERCEPT
     Indication: ANKYLOSING SPONDYLITIS

REACTIONS (4)
  - Oropharyngeal pain [Unknown]
  - Cough [Unknown]
  - Nasopharyngitis [Unknown]
  - Paranasal sinus hypersecretion [Unknown]

NARRATIVE: CASE EVENT DATE: 20160130
